FAERS Safety Report 9272294 (Version 1)
Quarter: 2013Q2

REPORT INFORMATION
  Report Type: Spontaneous
  Country: US (occurrence: US)
  Receive Date: 20130506
  Receipt Date: 20130506
  Transmission Date: 20140414
  Serious: No
  Sender: FDA-Public Use
  Company Number: US-ASTRAZENECA-2012SE85106

PATIENT
  Age: 49 Year
  Sex: Male

DRUGS (9)
  1. PRILOSEC OTC [Suspect]
     Route: 048
     Dates: start: 20120517
  2. AMBIAN [Concomitant]
  3. TYLENOL [Concomitant]
     Indication: ARTHRITIS
  4. TRAMADOL [Concomitant]
  5. NAPROXEN SODIUM [Concomitant]
  6. NASONEX [Concomitant]
  7. MEDROL ( PAK) [Concomitant]
  8. TRAZODONE [Concomitant]
  9. ZOLOFT [Concomitant]

REACTIONS (5)
  - Rhinitis allergic [Unknown]
  - Tuberculin test positive [Unknown]
  - Pain in extremity [Unknown]
  - Pain in extremity [Unknown]
  - Arthralgia [Unknown]
